FAERS Safety Report 6022425-3 (Version None)
Quarter: 2008Q4

REPORT INFORMATION
  Report Type: 
  Country: None (occurrence: None)
  Receive Date: 20081221
  Receipt Date: 20081221
  Transmission Date: 20090506
  Serious: Yes (Other)
  Sender: FDA-Public Use
  Company Number: None

PATIENT
  Age: 23 Year
  Sex: Male
  Weight: 58.0604 kg

DRUGS (1)
  1. CHANTIX [Suspect]

REACTIONS (8)
  - ABNORMAL DREAMS [None]
  - ANXIETY [None]
  - DEPRESSED MOOD [None]
  - DEPRESSION [None]
  - DIVORCED PARENTS [None]
  - FEELING ABNORMAL [None]
  - MOOD ALTERED [None]
  - THINKING ABNORMAL [None]
